FAERS Safety Report 8574931-5 (Version None)
Quarter: 2012Q3

REPORT INFORMATION
  Report Type: 
  Country: None (occurrence: None)
  Receive Date: 20120807
  Receipt Date: 20120727
  Transmission Date: 20120928
  Serious: Yes (Hospitalization)
  Sender: FDA-Public Use
  Company Number: US-BAYER-2012-016232

PATIENT
  Age: 25 Year
  Sex: Female
  Weight: 58.957 kg

DRUGS (11)
  1. YAZ [Suspect]
     Indication: PREMENSTRUAL SYNDROME
     Dosage: UNK
     Dates: start: 20080101, end: 20090401
  2. PENICILLIN VK [Concomitant]
     Dosage: 500 MG, UNK
  3. YAZ [Suspect]
  4. AUGMENTIN '500' [Concomitant]
     Dosage: 875 MG, 2 X DAY
  5. YAZ [Suspect]
     Indication: MUSCLE SPASMS
  6. MOTRIN [Concomitant]
  7. LAMISIL [Concomitant]
     Dosage: UNK
  8. AMOXICILLIN + CLAVULANATE POTASSIUM [Concomitant]
  9. HYDROCODONE BITARTRATE AND ACETAMINOPHEN [Concomitant]
     Dosage: 10 MG-650 MG
  10. HYDROCODONE BITARTRATE AND ACETAMINOPHEN [Concomitant]
     Dosage: 5 MG-500 MG
  11. YAZ [Suspect]
     Indication: MENORRHAGIA

REACTIONS (5)
  - GALLBLADDER DISORDER [None]
  - INJURY [None]
  - BILIARY DYSKINESIA [None]
  - PAIN [None]
  - MENTAL DISORDER [None]
